FAERS Safety Report 22702684 (Version 4)
Quarter: 2025Q1

REPORT INFORMATION
  Report Type: Spontaneous
  Country: US (occurrence: US)
  Receive Date: 20230713
  Receipt Date: 20250311
  Transmission Date: 20250408
  Serious: No
  Sender: PFIZER
  Company Number: US-PFIZER INC-202300247263

PATIENT
  Age: 78 Year
  Sex: Female
  Weight: 58.87 kg

DRUGS (4)
  1. IBRANCE [Suspect]
     Active Substance: PALBOCICLIB
     Indication: Breast cancer metastatic
     Dates: start: 202301
  2. IBRANCE [Suspect]
     Active Substance: PALBOCICLIB
  3. IBRANCE [Suspect]
     Active Substance: PALBOCICLIB
     Dosage: 100 MG, DAILY
     Dates: start: 202307
  4. LETROZOLE [Concomitant]
     Active Substance: LETROZOLE
     Indication: Bone density abnormal
     Dosage: 2.5 MG, DAILY
     Dates: start: 202301

REACTIONS (4)
  - Rash [Recovering/Resolving]
  - Skin burning sensation [Recovered/Resolved]
  - Neuralgia [Recovered/Resolved]
  - Cough [Unknown]

NARRATIVE: CASE EVENT DATE: 20230101
